FAERS Safety Report 8539662-6 (Version None)
Quarter: 2012Q3

REPORT INFORMATION
  Report Type: 
  Country: None (occurrence: None)
  Receive Date: 20120726
  Receipt Date: 20110720
  Transmission Date: 20120928
  Serious: No
  Sender: FDA-Public Use
  Company Number: US-ASTRAZENECA-2006UW08831

PATIENT
  Age: 180 Month
  Sex: Male
  Weight: 113.4 kg

DRUGS (12)
  1. SEROQUEL [Suspect]
     Dosage: 25 MG - 200 MG
     Route: 048
     Dates: start: 20010607
  2. SEROQUEL [Suspect]
     Dosage: 25 MG 2 TO 4 TABLETS TWICE A DAY
     Route: 048
     Dates: start: 20011003
  3. SEROQUEL [Suspect]
     Dosage: 25 MG 2 TO 4 TABLETS TWICE A DAY
     Route: 048
     Dates: start: 20011003
  4. SEROQUEL [Suspect]
     Indication: AUTISM
     Dosage: 25 MG TO 100 MG
     Route: 048
     Dates: start: 20010313, end: 20031024
  5. SEROQUEL [Suspect]
     Route: 048
     Dates: start: 20040607
  6. SEROQUEL [Suspect]
     Route: 048
     Dates: start: 20020126
  7. SEROQUEL [Suspect]
     Route: 048
     Dates: start: 20020126
  8. RISPERDAL [Suspect]
     Route: 065
     Dates: start: 19980101, end: 20010313
  9. SEROQUEL [Suspect]
     Dosage: 25 MG - 200 MG
     Route: 048
     Dates: start: 20010607
  10. ZYPREXA [Concomitant]
  11. SEROQUEL [Suspect]
     Indication: PSYCHOMOTOR HYPERACTIVITY
     Dosage: 25 MG TO 100 MG
     Route: 048
     Dates: start: 20010313, end: 20031024
  12. SEROQUEL [Suspect]
     Route: 048
     Dates: start: 20040607

REACTIONS (3)
  - OBESITY [None]
  - TYPE 2 DIABETES MELLITUS [None]
  - WEIGHT INCREASED [None]
